FAERS Safety Report 8081973-5 (Version None)
Quarter: 2012Q1

REPORT INFORMATION
  Report Type: 
  Country: None (occurrence: None)
  Receive Date: 20120130
  Receipt Date: 20111003
  Transmission Date: 20120608
  Serious: No
  Sender: FDA-Public Use
  Company Number: US-ABBOTT-11P-163-0863291-00

PATIENT
  Sex: Male

DRUGS (1)
  1. LUPRON DEPOT [Suspect]
     Indication: PROSTATE CANCER METASTATIC
     Dates: start: 20110511, end: 20110511

REACTIONS (3)
  - INJECTION SITE HAEMATOMA [None]
  - INJECTION SITE PAIN [None]
  - INJECTION SITE SWELLING [None]
